FAERS Safety Report 9239545 (Version 1)
Quarter: 2013Q2

REPORT INFORMATION
  Report Type: Spontaneous
  Country: US (occurrence: US)
  Receive Date: 20130418
  Receipt Date: 20130418
  Transmission Date: 20140414
  Serious: No
  Sender: FDA-Public Use
  Company Number: US-PFIZER INC-2013117869

PATIENT
  Age: 82 Year
  Sex: Female
  Weight: 58.96 kg

DRUGS (2)
  1. PREMARIN [Suspect]
     Indication: VULVOVAGINAL DISCOMFORT
     Dosage: UNK, 2X/WEEK
     Route: 067
     Dates: start: 201303
  2. VICODIN [Concomitant]
     Indication: POST POLIO SYNDROME
     Dosage: 5 MG, AS NEEDED

REACTIONS (2)
  - Vulvovaginal burning sensation [Unknown]
  - Genital paraesthesia [Unknown]
